FAERS Safety Report 9676680 (Version 1)
Quarter: 2013Q4

REPORT INFORMATION
  Report Type: Spontaneous
  Country: US (occurrence: US)
  Receive Date: 20131107
  Receipt Date: 20131107
  Transmission Date: 20140711
  Serious: Yes (Hospitalization)
  Sender: FDA-Public Use
  Company Number: US-MYLANLABS-2013S1024441

PATIENT
  Age: 5 Year
  Sex: Female

DRUGS (1)
  1. BUPROPION [Suspect]
     Indication: OVERDOSE
     Route: 048

REACTIONS (12)
  - Headache [Unknown]
  - Nausea [Unknown]
  - Vomiting [Unknown]
  - Leukocytosis [Unknown]
  - Convulsion [Unknown]
  - Tachycardia [Unknown]
  - Urinary incontinence [Unknown]
  - Mydriasis [Unknown]
  - Agitation [Unknown]
  - Gait disturbance [Unknown]
  - Overdose [Unknown]
  - Toxicity to various agents [Unknown]
